FAERS Safety Report 24586523 (Version 1)
Quarter: 2024Q4

REPORT INFORMATION
  Report Type: Report from Study
  Country: IN (occurrence: IN)
  Receive Date: 20241106
  Receipt Date: 20241106
  Transmission Date: 20250115
  Serious: Yes (Other)
  Sender: CIPLA
  Company Number: IN-CIPLA LTD.-2024IN12434

PATIENT

DRUGS (5)
  1. METOPROLOL SUCCINATE [Suspect]
     Active Substance: METOPROLOL SUCCINATE
     Indication: Product used for unknown indication
     Dosage: DOSE 1, FREQUENCY 1 (UNITS UNSPECIFIED)
     Route: 048
     Dates: start: 202306
  2. SPIRONOLACTONE\TORSEMIDE [Suspect]
     Active Substance: SPIRONOLACTONE\TORSEMIDE
     Indication: Product used for unknown indication
     Dosage: DOSE 1, FREQUENCY 1 (UNITS UNSPECIFIED) (STRENGTH: 10/25 UNITS UNSPECIFIED)
     Route: 048
     Dates: start: 202306
  3. CLOPIVAS AP [Concomitant]
     Indication: Product used for unknown indication
     Dosage: UNK (STRENGTH-75/150MG)
     Route: 065
     Dates: start: 202306
  4. MODLIP [SIMVASTATIN] [Concomitant]
     Indication: Product used for unknown indication
     Dosage: UNK
     Route: 065
     Dates: start: 202306
  5. OXRA [Concomitant]
     Indication: Product used for unknown indication
     Dosage: UNK
     Route: 065
     Dates: start: 202306

REACTIONS (2)
  - Coronary artery disease [Recovered/Resolved]
  - Tension [Not Recovered/Not Resolved]
